FAERS Safety Report 9308393 (Version 3)
Quarter: 2014Q2

REPORT INFORMATION
  Report Type: Report from Study
  Country: DE (occurrence: DE)
  Receive Date: 20130524
  Receipt Date: 20140428
  Transmission Date: 20141212
  Serious: Yes (Life-Threatening, Hospitalization, Other)
  Sender: FDA-Public Use
  Company Number: DE-CELGENEUS-062-21880-13052175

PATIENT
  Age: 59 Year
  Sex: Female
  Weight: 71 kg

DRUGS (24)
  1. REVLIMID [Suspect]
     Indication: PLASMA CELL MYELOMA
     Dosage: 25 MILLIGRAM
     Route: 048
     Dates: start: 20130429, end: 20130513
  2. BORTEZOMIB [Suspect]
     Indication: PLASMA CELL MYELOMA
     Dosage: 2.33 MG
     Route: 058
     Dates: start: 20130429, end: 20130513
  3. BORTEZOMIB [Suspect]
     Route: 058
     Dates: start: 20130618
  4. DEXAMETHASONE [Suspect]
     Indication: PLASMA CELL MYELOMA
     Dosage: 20 MILLIGRAM
     Route: 048
     Dates: start: 20130429, end: 20130513
  5. DEXAMETHASONE [Suspect]
     Route: 065
     Dates: start: 20130618
  6. PARACETAMOL [Suspect]
     Indication: BACK PAIN
     Dosage: 3000 MILLIGRAM
     Route: 048
     Dates: start: 20130510
  7. TARGIN [Concomitant]
     Indication: BACK PAIN
     Dosage: 10/5 MG
     Route: 048
     Dates: start: 20130506, end: 20130509
  8. TARGIN [Concomitant]
     Dosage: 10/5 MG
     Route: 048
     Dates: start: 20130510
  9. ALLOPURINOL [Concomitant]
     Indication: HYPERURICAEMIA
     Dosage: 300 MILLIGRAM
     Route: 048
     Dates: start: 20130424
  10. RAMIPRIL [Concomitant]
     Indication: HYPERTENSION
     Dosage: 5 MILLIGRAM
     Route: 048
     Dates: start: 201210
  11. AMLODIPINE [Concomitant]
     Indication: HYPERTENSION
     Dosage: 10 MILLIGRAM
     Route: 048
     Dates: start: 201210
  12. NOVALGIN [Concomitant]
     Indication: BACK PAIN
     Route: 048
  13. CLEXANE [Concomitant]
     Indication: PRODUCT USED FOR UNKNOWN INDICATION
     Dosage: 40 OTHER
     Route: 058
  14. PANTOPRAZOLE [Concomitant]
     Indication: PRODUCT USED FOR UNKNOWN INDICATION
     Dosage: 40 MILLIGRAM
     Route: 065
  15. PIMAFUCIN [Concomitant]
     Indication: PRODUCT USED FOR UNKNOWN INDICATION
     Route: 065
  16. ACICLOVIR [Concomitant]
     Indication: PRODUCT USED FOR UNKNOWN INDICATION
     Dosage: 1600 MILLIGRAM
     Route: 065
  17. COTRIM FORTE [Concomitant]
     Indication: PRODUCT USED FOR UNKNOWN INDICATION
     Route: 065
  18. CIPROFLOXACIN [Concomitant]
     Indication: PRODUCT USED FOR UNKNOWN INDICATION
     Route: 065
  19. PAMIDRONATE [Concomitant]
     Indication: PRODUCT USED FOR UNKNOWN INDICATION
     Route: 065
  20. ENOXAPARIN [Concomitant]
     Indication: PRODUCT USED FOR UNKNOWN INDICATION
     Dosage: 40
     Route: 058
  21. VALACICLOVIR [Concomitant]
     Indication: PRODUCT USED FOR UNKNOWN INDICATION
     Dosage: 1000 MILLIGRAM
     Route: 058
  22. NATAMYCIN [Concomitant]
     Indication: PRODUCT USED FOR UNKNOWN INDICATION
     Route: 058
  23. COTRIMOXAZOLE [Concomitant]
     Indication: PRODUCT USED FOR UNKNOWN INDICATION
     Dosage: 500 MILLIGRAM
     Route: 058
  24. METRONIDAZOLE [Concomitant]
     Indication: DIARRHOEA
     Route: 065

REACTIONS (3)
  - Hepatic enzyme increased [Recovered/Resolved]
  - Renal failure acute [Recovered/Resolved]
  - Hyponatraemia [Recovered/Resolved]
